FAERS Safety Report 5447163-7 (Version None)
Quarter: 2007Q3

REPORT INFORMATION
  Report Type: 
  Country: None (occurrence: None)
  Receive Date: 20070910
  Receipt Date: 20070903
  Transmission Date: 20080115
  Serious: Yes (Hospitalization)
  Sender: FDA-Public Use
  Company Number: PHRM2007FR02048

PATIENT
  Age: 73 Year
  Sex: Male

DRUGS (17)
  1. NEORAL [Suspect]
     Indication: HEART TRANSPLANT
     Dosage: UNK, UNK
     Route: 048
  2. ALLOPURINOL [Suspect]
     Indication: GOUT
     Dosage: 300 MG DAILY
     Route: 048
     Dates: start: 20070529
  3. COLCHIMAX  /FRA/ [Suspect]
     Indication: GOUT
     Dosage: 1 DF, QD
     Route: 048
     Dates: start: 20070529, end: 20070608
  4. AZATHIOPRINE SODIUM [Concomitant]
     Indication: HEART TRANSPLANT
  5. CELLCEPT [Suspect]
     Indication: HEART TRANSPLANT
     Dosage: 250 MG, BID
     Route: 048
     Dates: start: 20070529
  6. SOLU-MEDROL [Concomitant]
     Indication: HEART TRANSPLANT
  7. LASIX [Concomitant]
  8. MEDIATENSYL [Concomitant]
  9. CATAPRES [Concomitant]
  10. RABEPRAZOLE SODIUM [Concomitant]
  11. UN-ALFA [Concomitant]
  12. PLAVIX [Concomitant]
  13. EQUANIL [Concomitant]
  14. CLONAZEPAM [Concomitant]
  15. MOVICOL [Concomitant]
  16. FONZYLANE [Concomitant]
  17. EFFERALGAN CODEINE [Concomitant]

REACTIONS (6)
  - BLOOD CREATINE PHOSPHOKINASE INCREASED [None]
  - BLOOD CREATININE INCREASED [None]
  - GOUT [None]
  - MYALGIA [None]
  - MYOGLOBIN BLOOD INCREASED [None]
  - RHABDOMYOLYSIS [None]
